FAERS Safety Report 26084422 (Version 1)
Quarter: 2025Q4

REPORT INFORMATION
  Report Type: Spontaneous
  Country: CN (occurrence: CN)
  Receive Date: 20251124
  Receipt Date: 20251124
  Transmission Date: 20260117
  Serious: Yes (Hospitalization)
  Sender: BAYER HEALTHCARE PHARMACEUTICALS INC.
  Company Number: CN-BAYER-2025A154924

PATIENT
  Age: 62 Year
  Sex: Male
  Weight: 60 kg

DRUGS (3)
  1. NUBEQA [Suspect]
     Active Substance: DAROLUTAMIDE
     Indication: Prostate cancer
     Dosage: 600 MG, BID
     Route: 048
     Dates: start: 20251112, end: 20251112
  2. DOCETAXEL [Suspect]
     Active Substance: DOCETAXEL
     Indication: Prostate cancer
     Dosage: 100 MG, QD
     Route: 041
     Dates: start: 20251112, end: 20251112
  3. SODIUM CHLORIDE [Concomitant]
     Active Substance: SODIUM CHLORIDE
     Indication: Vehicle solution use
     Dosage: 200 ML, QD
     Route: 041
     Dates: start: 20251112, end: 20251112

REACTIONS (6)
  - Myelosuppression [Unknown]
  - White blood cell count decreased [None]
  - Lymphocyte count decreased [None]
  - Neutrophil count decreased [None]
  - Red blood cell count decreased [None]
  - Anaemia [None]

NARRATIVE: CASE EVENT DATE: 20251118
